FAERS Safety Report 8990919 (Version 1)
Quarter: 2012Q4

REPORT INFORMATION
  Report Type: Spontaneous
  Country: US (occurrence: None)
  Receive Date: 20121227
  Receipt Date: 20121227
  Transmission Date: 20130627
  Serious: Yes (Hospitalization)
  Sender: FDA-Public Use
  Company Number: None

PATIENT
  Sex: Female
  Weight: 118.4 kg

DRUGS (1)
  1. CUBICIN [Suspect]
     Indication: COAGULASE NEGATIVE STAPHYLOCOCCAL INFECTION
     Dosage: 750 mg every 24 hours IV
     Route: 042
     Dates: start: 20121206, end: 20121217

REACTIONS (7)
  - Pallor [None]
  - Ataxia [None]
  - Skin exfoliation [None]
  - Neurological examination abnormal [None]
  - Bacteraemia [None]
  - Dyspnoea [None]
  - Eosinophilic pneumonia [None]
